FAERS Safety Report 24565250 (Version 1)
Quarter: 2024Q4

REPORT INFORMATION
  Report Type: Spontaneous
  Country: GB (occurrence: GB)
  Receive Date: 20241030
  Receipt Date: 20241030
  Transmission Date: 20250114
  Serious: Yes (Disabling, Other)
  Sender: ANI
  Company Number: GB-ANIPHARMA-2024-UK-000210

PATIENT
  Age: 57 Year
  Sex: Female
  Weight: 90 kg

DRUGS (6)
  1. ARIMIDEX [Suspect]
     Active Substance: ANASTROZOLE
     Indication: Product used for unknown indication
     Dosage: MG
     Dates: start: 20240806, end: 20240828
  2. CLINDAMYCIN [Concomitant]
     Active Substance: CLINDAMYCIN
     Dates: start: 20240715, end: 20240813
  3. ESTRIOL [Concomitant]
     Active Substance: ESTRIOL
     Dates: start: 20240722, end: 20240903
  4. BETAMETHASONE [Concomitant]
     Active Substance: BETAMETHASONE
     Dates: start: 20240903
  5. TIMOLOL [Concomitant]
     Active Substance: TIMOLOL\TIMOLOL MALEATE
     Dates: start: 20240916
  6. DORZOLAMIDE [Concomitant]
     Active Substance: DORZOLAMIDE

REACTIONS (4)
  - Dry eye [Recovering/Resolving]
  - Glaucoma [Recovering/Resolving]
  - Headache [Recovered/Resolved]
  - Injury corneal [Unknown]

NARRATIVE: CASE EVENT DATE: 20240810
